FAERS Safety Report 6721817-4 (Version None)
Quarter: 2010Q2

REPORT INFORMATION
  Report Type: 
  Country: None (occurrence: None)
  Receive Date: 20100512
  Receipt Date: 20100503
  Transmission Date: 20101027
  Serious: Yes (Other)
  Sender: FDA-Public Use
  Company Number: US-ROCHE-702231

PATIENT
  Sex: Female
  Weight: 93.9 kg

DRUGS (7)
  1. CAPECITABINE [Suspect]
     Indication: COLORECTAL CANCER
     Dosage: ROUTE: MOUTH; DOSE AND FREQUENCY: 1000 MG BID X 14 DAYS
     Route: 048
     Dates: start: 20100309
  2. NEURONTIN [Concomitant]
  3. PRILOSEC [Concomitant]
  4. METFORMIN HYDROCHLORIDE [Concomitant]
  5. GLUCOSAMINE [Concomitant]
  6. VERAPAMIL [Concomitant]
  7. EVISTA [Concomitant]

REACTIONS (3)
  - CHAPPED LIPS [None]
  - FACIAL PALSY [None]
  - FATIGUE [None]
